FAERS Safety Report 4393890-2 (Version None)
Quarter: 2004Q3

REPORT INFORMATION
  Report Type: 
  Country: None (occurrence: None)
  Receive Date: 20040702
  Receipt Date: 20040618
  Transmission Date: 20050211
  Serious: Yes (Congenital Anomaly)
  Sender: FDA-Public Use
  Company Number: 04P-163-0265080-00

PATIENT

DRUGS (1)
  1. VALPROATE SODIUM [Suspect]

REACTIONS (6)
  - BONE DISORDER [None]
  - CONGENITAL ANOMALY [None]
  - DEVELOPMENTAL DELAY [None]
  - DRUG EXPOSURE DURING PREGNANCY [None]
  - DYSPLASIA [None]
  - HIGH ARCHED PALATE [None]
